FAERS Safety Report 8225572 (Version 3)
Quarter: 2012Q4

REPORT INFORMATION
  Report Type: 
  Country: US (occurrence: US)
  Receive Date: 20111103
  Receipt Date: 20120913
  Transmission Date: 20130627
  Serious: Yes (Other)
  Sender: FDA-Public Use
  Company Number: US-PFIZER INC-2011263179

PATIENT
  Age: 41 Year
  Sex: Male
  Weight: 63.49 kg

DRUGS (8)
  1. NEURONTIN [Suspect]
     Indication: NERVE INJURY
     Dosage: 600 mg, 3x/day
     Dates: start: 2004
  2. NEURONTIN [Suspect]
     Indication: MIGRAINE
  3. GABAPENTIN [Suspect]
     Indication: NERVE INJURY
     Dosage: UNK
     Dates: start: 2004
  4. GABAPENTIN [Suspect]
     Indication: MIGRAINE
  5. ELMIRON [Concomitant]
     Dosage: UNK
  6. MORPHINE [Concomitant]
     Dosage: UNK, daily
  7. VICODIN [Concomitant]
     Dosage: 7.5 mg, 4x/day
  8. TRAMADOL [Concomitant]
     Dosage: 50mg three to four times a day

REACTIONS (3)
  - Hearing impaired [Unknown]
  - Drug ineffective [Unknown]
  - Malaise [Unknown]
